FAERS Safety Report 9313294 (Version 1)
Quarter: 2013Q2

REPORT INFORMATION
  Report Type: Spontaneous
  Country: US (occurrence: US)
  Receive Date: 20130528
  Receipt Date: 20130528
  Transmission Date: 20140414
  Serious: No
  Sender: FDA-Public Use
  Company Number: US-ABBOTT-13P-163-1058777-00

PATIENT
  Sex: Male
  Weight: 127.12 kg

DRUGS (9)
  1. ANDROGEL 1.62% [Suspect]
     Indication: BLOOD TESTOSTERONE DECREASED
     Dosage: 6 PUMPS
     Route: 061
     Dates: start: 201302
  2. ANDROGEL 1.62% [Suspect]
     Route: 061
     Dates: start: 2012, end: 201302
  3. DILTIAZEM [Concomitant]
     Indication: HYPERTENSION
  4. ARTHROTEC [Concomitant]
     Indication: ARTHRITIS
  5. PAXIL [Concomitant]
     Indication: ANXIETY
  6. PAXIL [Concomitant]
     Indication: DEPRESSION
  7. PRILOSEC [Concomitant]
     Indication: GASTROOESOPHAGEAL REFLUX DISEASE
  8. LOVASTATIN [Concomitant]
     Indication: BLOOD CHOLESTEROL INCREASED
  9. ADVAIR [Concomitant]
     Indication: CHRONIC OBSTRUCTIVE PULMONARY DISEASE

REACTIONS (2)
  - Prescribed overdose [Unknown]
  - Blood testosterone decreased [Not Recovered/Not Resolved]
